FAERS Safety Report 17735466 (Version 1)
Quarter: 2020Q2

REPORT INFORMATION
  Report Type: Spontaneous
  Country: IR (occurrence: IR)
  Receive Date: 20200501
  Receipt Date: 20200501
  Transmission Date: 20200714
  Serious: Yes (Death, Hospitalization)
  Sender: FDA-Public Use
  Company Number: IR-ENDO PHARMACEUTICALS INC-2020-003481

PATIENT
  Age: 88 Year
  Sex: Female

DRUGS (2)
  1. RHEUMATREX [Suspect]
     Active Substance: METHOTREXATE SODIUM
     Indication: PRODUCT USED FOR UNKNOWN INDICATION
     Dosage: 1.25 MG, UNKNOWN
     Route: 065
  2. RHEUMATREX [Suspect]
     Active Substance: METHOTREXATE SODIUM
     Dosage: 2.5 MG FIVE DAYS A WEEK IN THE LAST MONTH FOR ONE MONTH
     Route: 065

REACTIONS (4)
  - Accidental exposure to product [Unknown]
  - Toxicity to various agents [Unknown]
  - Pulmonary oedema [Fatal]
  - Product dispensing error [Unknown]
